FAERS Safety Report 6700099-3 (Version None)
Quarter: 2010Q2

REPORT INFORMATION
  Report Type: 
  Country: None (occurrence: None)
  Receive Date: 20100428
  Receipt Date: 20100407
  Transmission Date: 20101027
  Serious: No
  Sender: FDA-Public Use
  Company Number: US-B.I. PHARMACEUTICALS,INC./RIDGEFIELD-2010-BP-03964BP

PATIENT
  Age: 60 Year
  Sex: Female

DRUGS (1)
  1. FLOMAX [Suspect]
     Indication: MICTURITION DISORDER
     Dosage: 0.4 MG
     Route: 048
     Dates: start: 20091001

REACTIONS (3)
  - ASTHENIA [None]
  - DIZZINESS [None]
  - WEIGHT INCREASED [None]
